FAERS Safety Report 24327638 (Version 3)
Quarter: 2024Q3

REPORT INFORMATION
  Report Type: Spontaneous
  Country: TR (occurrence: TR)
  Receive Date: 20240917
  Receipt Date: 20240924
  Transmission Date: 20241016
  Serious: Yes (Other)
  Sender: SANDOZ
  Company Number: TR-SANDOZ-SDZ2024TR078721

PATIENT
  Age: 4 Year
  Sex: Male

DRUGS (1)
  1. OMNITROPE [Suspect]
     Active Substance: SOMATROPIN
     Indication: Growth hormone deficiency
     Dosage: UNK
     Route: 065

REACTIONS (6)
  - Symptom recurrence [Unknown]
  - Product availability issue [Unknown]
  - Product quality issue [Unknown]
  - Product use issue [Unknown]
  - Product supply issue [Unknown]
  - Product storage error [Unknown]
